FAERS Safety Report 8835818 (Version 2)
Quarter: 2012Q4

REPORT INFORMATION
  Report Type: 
  Country: US (occurrence: US)
  Receive Date: 20121011
  Receipt Date: 20121130
  Transmission Date: 20130627
  Serious: No
  Sender: FDA-Public Use
  Company Number: US-009507513-1210USA001553

PATIENT
  Sex: Male
  Weight: 84.35 kg

DRUGS (3)
  1. VICTRELIS [Suspect]
     Indication: HEPATITIS C
     Dosage: 800 mg, tid
     Route: 048
     Dates: start: 20120709
  2. RIBAPAK [Suspect]
     Indication: HEPATITIS C
     Dosage: 600 mg, UNK 600/600 mg
  3. PEGASYS [Suspect]
     Indication: HEPATITIS C
     Dosage: 180 Microgram, UNK

REACTIONS (3)
  - Influenza like illness [Unknown]
  - Fatigue [Unknown]
  - Diarrhoea [Unknown]
